FAERS Safety Report 15314992 (Version 1)
Quarter: 2018Q3

REPORT INFORMATION
  Report Type: Spontaneous
  Country: US (occurrence: US)
  Receive Date: 20180815
  Receipt Date: 20180815
  Transmission Date: 20181010
  Serious: Yes (Death)
  Sender: FDA-Public Use
  Company Number: None

PATIENT
  Age: 80 Year
  Sex: Male
  Weight: 94.95 kg

DRUGS (7)
  1. GOUT MED [Concomitant]
  2. TRULICITY [Suspect]
     Active Substance: DULAGLUTIDE
     Indication: DIABETES MELLITUS
     Dosage: ?          QUANTITY:1 INJECTION(S);?
     Route: 030
  3. COENZYME Q10 [Concomitant]
     Active Substance: UBIDECARENONE
  4. DIABETES MED [Concomitant]
  5. OXY [Concomitant]
     Active Substance: BENZOYL PEROXIDE
  6. A FEW HEART MEDS [Concomitant]
  7. BABY ASPRIN [Concomitant]
     Active Substance: ASPIRIN

REACTIONS (1)
  - Pancreatitis [None]

NARRATIVE: CASE EVENT DATE: 20180220
